FAERS Safety Report 8618501-9 (Version None)
Quarter: 2012Q3

REPORT INFORMATION
  Report Type: 
  Country: None (occurrence: None)
  Receive Date: 20120810
  Receipt Date: 20120730
  Transmission Date: 20120928
  Serious: Yes (Hospitalization)
  Sender: FDA-Public Use
  Company Number: UTC-021604

PATIENT
  Age: 53 Year
  Sex: Female
  Weight: 70.13 kg

DRUGS (1)
  1. REMODULIN [Suspect]
     Indication: COR PULMONALE CHRONIC
     Dosage: 17.28 UG/KG (0.012 UG/KG, 1 IN 1 MIN), SUBCUTANEOUS
     Route: 058
     Dates: start: 20120613

REACTIONS (1)
  - RESPIRATORY DISTRESS [None]
